FAERS Safety Report 7927752-8 (Version None)
Quarter: 2011Q4

REPORT INFORMATION
  Report Type: 
  Country: None (occurrence: None)
  Receive Date: 20111118
  Receipt Date: 20110629
  Transmission Date: 20120403
  Serious: No
  Sender: FDA-Public Use
  Company Number: US-BRISTOL-MYERS SQUIBB COMPANY-15863160

PATIENT
  Age: 67 Year
  Sex: Female
  Weight: 57 kg

DRUGS (11)
  1. ASPIRIN [Concomitant]
  2. CALCIUM [Concomitant]
  3. OMEGA [Concomitant]
  4. ATENOLOL [Concomitant]
  5. AMLODIPINE [Concomitant]
  6. METFORMIN HCL [Suspect]
  7. CRESTOR [Concomitant]
  8. LISINOPRIL [Concomitant]
  9. VITAMIN D [Concomitant]
  10. METFORMIN HCL [Suspect]
  11. VITAMIN TAB [Concomitant]

REACTIONS (2)
  - DIARRHOEA [None]
  - WEIGHT DECREASED [None]
